FAERS Safety Report 4332716-X (Version None)
Quarter: 2004Q1

REPORT INFORMATION
  Report Type: 
  Country: None (occurrence: None)
  Receive Date: 20040330
  Receipt Date: 20040323
  Transmission Date: 20041129
  Serious: Yes (Disabling, Other)
  Sender: FDA-Public Use
  Company Number: 19444

PATIENT
  Age: 68 Year
  Sex: Male
  Weight: 88.4514 kg

DRUGS (4)
  1. NIASPAN [Suspect]
     Indication: HIGH DENSITY LIPOPROTEIN DECREASED
     Dosage: 500 MG QHS; PO
     Route: 048
  2. AMIODARONE HCL [Suspect]
     Indication: ATRIAL FIBRILLATION
     Dosage: 200 MG QD; PO
     Route: 048
     Dates: start: 20010101, end: 20040315
  3. TOPROL-XL [Concomitant]
  4. ASPIRIN [Concomitant]

REACTIONS (7)
  - FEELING HOT [None]
  - FLUSHING [None]
  - INSOMNIA [None]
  - OPTIC NERVE SHEATH HAEMORRHAGE [None]
  - PAPILLOEDEMA [None]
  - PRURITUS [None]
  - VISUAL ACUITY REDUCED [None]
